FAERS Safety Report 14480440 (Version 3)
Quarter: 2018Q2

REPORT INFORMATION
  Report Type: Spontaneous
  Country: JP (occurrence: JP)
  Receive Date: 20180202
  Receipt Date: 20180406
  Transmission Date: 20180711
  Serious: Yes (Death)
  Sender: FDA-Public Use
  Company Number: JP-OTSUKA-2018_002731

PATIENT
  Sex: Female

DRUGS (1)
  1. BUSULFEX [Suspect]
     Active Substance: BUSULFAN
     Indication: BONE MARROW CONDITIONING REGIMEN
     Dosage: 5.6 MG, DAILY DOSE
     Route: 041
     Dates: start: 201605, end: 201605

REACTIONS (1)
  - Pulmonary vein occlusion [Fatal]

NARRATIVE: CASE EVENT DATE: 20160612
